FAERS Safety Report 7910724-7 (Version None)
Quarter: 2011Q4

REPORT INFORMATION
  Report Type: 
  Country: None (occurrence: None)
  Receive Date: 20111111
  Receipt Date: 20091119
  Transmission Date: 20120403
  Serious: Yes (Other)
  Sender: FDA-Public Use
  Company Number: PHHY2009CA69301

PATIENT

DRUGS (1)
  1. ALISKIREN [Suspect]
     Dosage: 150 MG, UNK

REACTIONS (2)
  - BLOOD PRESSURE INCREASED [None]
  - SLEEP APNOEA SYNDROME [None]
